FAERS Safety Report 13851927 (Version 1)
Quarter: 2017Q3

REPORT INFORMATION
  Report Type: Spontaneous
  Country: US (occurrence: US)
  Receive Date: 20170809
  Receipt Date: 20170809
  Transmission Date: 20171127
  Serious: No
  Sender: FDA-Public Use
  Company Number: US-ROCHE-617133

PATIENT
  Age: 71 Year
  Sex: Female
  Weight: 43.5 kg

DRUGS (14)
  1. CALCIUM CITRATE [Concomitant]
     Active Substance: CALCIUM CITRATE
     Route: 065
  2. VITAMIN C [Concomitant]
     Active Substance: ASCORBIC ACID
     Route: 065
  3. ZOLOFT [Concomitant]
     Active Substance: SERTRALINE HYDROCHLORIDE
     Dosage: AS PER NEEDED
     Route: 048
  4. MINTOX [Concomitant]
     Active Substance: ALUMINUM HYDROXIDE\DIMETHICONE\MAGNESIUM HYDROXIDE
     Dosage: DRUG REPORTED: MINTOX PLUS, FREQUENCY: EVERY DAY
     Route: 048
  5. PREVACID [Concomitant]
     Active Substance: LANSOPRAZOLE
     Indication: GASTROOESOPHAGEAL REFLUX DISEASE
     Dosage: EVERY DAY
     Route: 048
  6. VITAMIN D [Concomitant]
     Active Substance: CHOLECALCIFEROL
     Route: 065
  7. BONIVA [Suspect]
     Active Substance: IBANDRONATE SODIUM
     Indication: OSTEOPOROSIS
     Route: 048
  8. BONIVA [Suspect]
     Active Substance: IBANDRONATE SODIUM
     Indication: OSTEOPOROSIS
     Route: 042
  9. BONIVA [Suspect]
     Active Substance: IBANDRONATE SODIUM
     Dosage: STRENGTH: 3MG/ML
     Route: 042
     Dates: start: 20081230, end: 20090929
  10. VITAMIN E [Concomitant]
     Active Substance: .ALPHA.-TOCOPHEROL
     Route: 065
  11. KLONOPIN [Concomitant]
     Active Substance: CLONAZEPAM
     Dosage: AS PER NEEDED
     Route: 048
  12. OGEN [Concomitant]
     Active Substance: ESTROPIPATE
     Dosage: FREQUENCY: EVERY DAY
     Route: 048
  13. NEXIUM [Concomitant]
     Active Substance: ESOMEPRAZOLE MAGNESIUM
     Route: 065
  14. ZANTAC [Concomitant]
     Active Substance: RANITIDINE HYDROCHLORIDE
     Indication: GASTROOESOPHAGEAL REFLUX DISEASE
     Dosage: FREQUENCY: EVERY DAY
     Route: 048

REACTIONS (11)
  - Ill-defined disorder [Unknown]
  - Arthralgia [Not Recovered/Not Resolved]
  - Back pain [Unknown]
  - Bone pain [Not Recovered/Not Resolved]
  - Bone density decreased [Unknown]
  - Oesophageal irritation [Unknown]
  - Musculoskeletal pain [Not Recovered/Not Resolved]
  - Blood magnesium decreased [Unknown]
  - Pain in jaw [Unknown]
  - Toothache [Recovered/Resolved]
  - Vision blurred [Not Recovered/Not Resolved]

NARRATIVE: CASE EVENT DATE: 200801
